FAERS Safety Report 18486492 (Version 1)
Quarter: 2020Q4

REPORT INFORMATION
  Report Type: Spontaneous
  Country: TH (occurrence: TH)
  Receive Date: 20201110
  Receipt Date: 20201110
  Transmission Date: 20210114
  Serious: Yes (Other)
  Sender: FDA-Public Use
  Company Number: TH-LUPIN PHARMACEUTICALS INC.-2020-08497

PATIENT
  Age: 39 Year
  Sex: Female

DRUGS (4)
  1. PHENYTOIN SODIUM. [Interacting]
     Active Substance: PHENYTOIN SODIUM
     Dosage: 300 MILLIGRAM, QD
     Route: 065
  2. PHENYTOIN SODIUM. [Suspect]
     Active Substance: PHENYTOIN SODIUM
     Indication: EPILEPSY
     Dosage: 300 MILLIGRAM, QD (PILL, AT BED TIME)
     Route: 065
  3. INFLUENZA VIRUS VACCINE [Interacting]
     Active Substance: INFLUENZA VIRUS VACCINE
     Indication: IMMUNISATION
     Dosage: 05 MILLILITER, UNK
     Route: 065
  4. PHENYTOIN SODIUM. [Interacting]
     Active Substance: PHENYTOIN SODIUM
     Dosage: 200 MILLIGRAM, QD (AT BEDTIME)
     Route: 065

REACTIONS (4)
  - Dizziness [Recovered/Resolved]
  - Drug interaction [Unknown]
  - Ataxia [Recovered/Resolved]
  - Toxicity to various agents [Unknown]
